FAERS Safety Report 9398395 (Version 1)
Quarter: 2013Q3

REPORT INFORMATION
  Report Type: Spontaneous
  Country: FR (occurrence: FR)
  Receive Date: 20130712
  Receipt Date: 20130712
  Transmission Date: 20140515
  Serious: Yes (Hospitalization)
  Sender: FDA-Public Use
  Company Number: FR-ABBOTT-13X-056-1115019-00

PATIENT
  Age: 28 Year
  Sex: Female

DRUGS (7)
  1. NAXY [Suspect]
     Indication: LARYNGITIS
     Route: 048
     Dates: start: 20130510, end: 20130520
  2. CLAMOXYL [Suspect]
     Indication: LARYNGITIS
     Route: 048
     Dates: start: 20130508, end: 20130510
  3. ASPIRIN [Suspect]
     Indication: PAIN
     Route: 048
     Dates: start: 20130510
  4. ASPIRIN [Suspect]
     Indication: PAIN
  5. IBUPROFEN [Suspect]
     Indication: LARYNGITIS
     Route: 048
     Dates: start: 20130510, end: 20130515
  6. ROCEPHINE [Concomitant]
     Indication: LARYNGITIS
     Route: 042
     Dates: start: 20130525, end: 20130528
  7. VANCOMYCIN [Concomitant]
     Indication: LARYNGITIS
     Route: 042
     Dates: start: 20130526, end: 20130530

REACTIONS (9)
  - Bone marrow failure [Recovered/Resolved]
  - Agranulocytosis [Recovering/Resolving]
  - Monocytopenia [Unknown]
  - Osteitis [Unknown]
  - Asthenia [Unknown]
  - Swelling [Unknown]
  - Anaemia [Unknown]
  - Lymphopenia [Unknown]
  - Oedema [Unknown]
